FAERS Safety Report 25890032 (Version 2)
Quarter: 2025Q4

REPORT INFORMATION
  Report Type: Spontaneous
  Country: US (occurrence: US)
  Receive Date: 20251007
  Receipt Date: 20251210
  Transmission Date: 20260117
  Serious: Yes (Other)
  Sender: STALLERGENES
  Company Number: US-STALCOR-2025-AER-02601

PATIENT
  Age: 60 Year
  Sex: Male

DRUGS (20)
  1. MOLD MIX 1 [Suspect]
     Active Substance: ALTERNARIA ALTERNATA\ASPERGILLUS NIGER VAR. NIGER\CLADOSPORIUM SPHAEROSPERMUM
     Indication: Rhinitis allergic
     Route: 058
     Dates: start: 202506
  2. MOLD MIX 1 [Suspect]
     Active Substance: ALTERNARIA ALTERNATA\ASPERGILLUS NIGER VAR. NIGER\CLADOSPORIUM SPHAEROSPERMUM
     Route: 058
     Dates: start: 20141223
  3. STANDARDIZED GRASS MIX 4 [Concomitant]
     Indication: Rhinitis allergic
     Route: 058
     Dates: start: 202506
  4. STANDARDIZED GRASS MIX 4 [Concomitant]
     Route: 058
     Dates: start: 20141223
  5. RAGWEED MIXTURE [Concomitant]
     Active Substance: AMBROSIA ARTEMISIIFOLIA POLLEN\AMBROSIA BIDENTATA POLLEN\AMBROSIA PSILOSTACHYA POLLEN\AMBROSIA TRIFI
     Indication: Rhinitis allergic
     Route: 058
     Dates: start: 202506
  6. RAGWEED MIXTURE [Concomitant]
     Active Substance: AMBROSIA ARTEMISIIFOLIA POLLEN\AMBROSIA BIDENTATA POLLEN\AMBROSIA PSILOSTACHYA POLLEN\AMBROSIA TRIFI
     Route: 058
     Dates: start: 20141223
  7. R. PIGWEED [Concomitant]
     Indication: Rhinitis allergic
     Route: 058
     Dates: start: 202506
  8. R. PIGWEED [Concomitant]
     Route: 058
     Dates: start: 20141223
  9. CULTIVATED WHEAT [Concomitant]
     Active Substance: TRITICUM AESTIVUM POLLEN
     Indication: Rhinitis allergic
     Route: 058
     Dates: start: 202506
  10. CULTIVATED WHEAT [Concomitant]
     Active Substance: TRITICUM AESTIVUM POLLEN
     Route: 058
     Dates: start: 20141223
  11. MITE MIX [Concomitant]
     Indication: Rhinitis allergic
     Route: 058
     Dates: start: 202506
  12. MITE MIX [Concomitant]
     Route: 058
     Dates: start: 20141223
  13. STD. CAT [Concomitant]
     Indication: Rhinitis allergic
     Route: 058
     Dates: start: 202506
  14. STD. CAT [Concomitant]
     Route: 058
     Dates: start: 20141223
  15. 10 TREE MIX [Concomitant]
     Active Substance: ACER NEGUNDO POLLEN\BETULA NIGRA POLLEN\BLACK WALNUT\CARYA OVATA POLLEN\FRAXINUS AMERICANA POLLEN\PL
     Indication: Rhinitis allergic
     Route: 058
     Dates: start: 202506
  16. 10 TREE MIX [Concomitant]
     Active Substance: ACER NEGUNDO POLLEN\BETULA NIGRA POLLEN\BLACK WALNUT\CARYA OVATA POLLEN\FRAXINUS AMERICANA POLLEN\PL
     Route: 058
     Dates: start: 20141223
  17. R. THISTLE [Concomitant]
     Indication: Rhinitis allergic
     Route: 058
     Dates: start: 202506
  18. R. THISTLE [Concomitant]
     Route: 058
     Dates: start: 20141223
  19. DOG HAIR [Concomitant]
     Active Substance: CANIS LUPUS FAMILIARIS HAIR
     Indication: Rhinitis allergic
     Route: 058
     Dates: start: 202506
  20. DOG HAIR [Concomitant]
     Active Substance: CANIS LUPUS FAMILIARIS HAIR
     Route: 058
     Dates: start: 20141223

REACTIONS (2)
  - Intervertebral discitis [Unknown]
  - Therapy interrupted [Unknown]
